FAERS Safety Report 6524021-8 (Version None)
Quarter: 2009Q4

REPORT INFORMATION
  Report Type: 
  Country: None (occurrence: None)
  Receive Date: 20091231
  Receipt Date: 20091223
  Transmission Date: 20100525
  Serious: Yes (Other)
  Sender: FDA-Public Use
  Company Number: GB-GENENTECH-295045

PATIENT
  Sex: Female

DRUGS (6)
  1. MABTHERA [Suspect]
     Indication: B-CELL LYMPHOMA
     Dosage: UNK
     Route: 065
     Dates: start: 20090906, end: 20091110
  2. CYCLOPHOSPHAMIDE [Concomitant]
     Indication: B-CELL LYMPHOMA
     Dosage: UNK
     Dates: start: 20090906, end: 20091110
  3. VINCRISTINE [Concomitant]
     Indication: B-CELL LYMPHOMA
     Dosage: UNK
     Dates: start: 20090906, end: 20091110
  4. PREDNISOLONE [Concomitant]
     Indication: B-CELL LYMPHOMA
     Dosage: UNK
     Dates: start: 20090906, end: 20091110
  5. PARACETAMOL [Concomitant]
     Indication: PREMEDICATION
     Dosage: UNK
  6. ANTIHISTAMINE [Concomitant]
     Indication: PREMEDICATION
     Dosage: UNK

REACTIONS (11)
  - ASTHENIA [None]
  - CHEST PAIN [None]
  - CHILLS [None]
  - DYSPNOEA [None]
  - FIBRIN D DIMER INCREASED [None]
  - FLUSHING [None]
  - INFUSION RELATED REACTION [None]
  - MUSCULAR WEAKNESS [None]
  - PARAESTHESIA [None]
  - PYREXIA [None]
  - URTICARIA [None]
